FAERS Safety Report 16869484 (Version 1)
Quarter: 2019Q3

REPORT INFORMATION
  Report Type: Spontaneous
  Country: KR (occurrence: KR)
  Receive Date: 20190930
  Receipt Date: 20190930
  Transmission Date: 20191005
  Serious: Yes (Life-Threatening)
  Sender: FDA-Public Use
  Company Number: KR-FRESENIUS KABI-FK201910728

PATIENT
  Age: 17 Year
  Sex: Female

DRUGS (3)
  1. ACETYLCYSTEINE (MANUFACTURER UNKNOWN) [Suspect]
     Active Substance: ACETYLCYSTEINE
     Indication: OVERDOSE
     Route: 040
  2. ACETYLCYSTEINE (MANUFACTURER UNKNOWN) [Suspect]
     Active Substance: ACETYLCYSTEINE
     Route: 041
  3. ACETYLCYSTEINE (MANUFACTURER UNKNOWN) [Suspect]
     Active Substance: ACETYLCYSTEINE
     Dosage: REPEATED INFUSIONS UNTIL THREE CONSECUTIVE RECOVERING VALUES OF THE INR HAVE BEEN DEMONSTRATED
     Route: 041

REACTIONS (1)
  - Anaphylactoid reaction [Recovered/Resolved]
